FAERS Safety Report 17417535 (Version 1)
Quarter: 2020Q1

REPORT INFORMATION
  Report Type: Spontaneous
  Country: US (occurrence: US)
  Receive Date: 20200214
  Receipt Date: 20200214
  Transmission Date: 20200409
  Serious: No
  Sender: FDA-Public Use
  Company Number: US-ASTRAZENECA-2020SE09713

PATIENT
  Sex: Female

DRUGS (2)
  1. FASLODEX [Suspect]
     Active Substance: FULVESTRANT
     Dosage: OFF 7 DAYS WITH FASLODEX
     Route: 030
  2. IBRANCE [Suspect]
     Active Substance: PALBOCICLIB
     Indication: BREAST CANCER FEMALE
     Route: 048
     Dates: start: 20191223

REACTIONS (5)
  - Fatigue [Unknown]
  - Dry skin [Unknown]
  - Herpes zoster [Unknown]
  - Platelet count decreased [Unknown]
  - Neuropathy peripheral [Unknown]
